FAERS Safety Report 26071458 (Version 1)
Quarter: 2025Q4

REPORT INFORMATION
  Report Type: Spontaneous
  Country: US (occurrence: US)
  Receive Date: 20251120
  Receipt Date: 20251120
  Transmission Date: 20260117
  Serious: Yes (Hospitalization)
  Sender: NOBELPHARMA
  Company Number: US-NPA-2025-AER-01991

PATIENT
  Sex: Male
  Weight: 69.9 kg

DRUGS (4)
  1. HYFTOR [Suspect]
     Active Substance: SIROLIMUS
     Indication: Tuberous sclerosis complex
     Route: 061
  2. CARBAMAZEPINE [Concomitant]
     Active Substance: CARBAMAZEPINE
     Dosage: 100MG/5ML
  3. FELBAMATE [Concomitant]
     Active Substance: FELBAMATE
     Dosage: 600MG/5ML
  4. PHENOBARBITAL [Concomitant]
     Active Substance: PHENOBARBITAL
     Dosage: 20MG/5ML

REACTIONS (2)
  - Hospitalisation [Unknown]
  - Product storage error [Unknown]
